FAERS Safety Report 23332285 (Version 1)
Quarter: 2023Q4

REPORT INFORMATION
  Report Type: Spontaneous
  Country: TR (occurrence: TR)
  Receive Date: 20231222
  Receipt Date: 20231222
  Transmission Date: 20240110
  Serious: Yes (Other)
  Sender: FDA-Public Use
  Company Number: TR-002147023-NVSC2023TR271505

PATIENT
  Age: 20 Year
  Sex: Male

DRUGS (2)
  1. TRILEPTAL [Suspect]
     Active Substance: OXCARBAZEPINE
     Indication: Epilepsy
     Dosage: 600 MG, BID (FOR 10 YEARS)
     Route: 065
  2. TRILEPTAL [Suspect]
     Active Substance: OXCARBAZEPINE
     Indication: Cerebral palsy
     Dosage: 300 MG, QID (FOR 10 YEARS) (SERILAL NO. 210869950409550)
     Route: 065

REACTIONS (5)
  - Seizure [Unknown]
  - Cell death [Unknown]
  - Product supply issue [Unknown]
  - Incorrect dose administered [Unknown]
  - Off label use [Unknown]
